FAERS Safety Report 24168653 (Version 1)
Quarter: 2024Q3

REPORT INFORMATION
  Report Type: Spontaneous
  Country: US (occurrence: None)
  Receive Date: 20240802
  Receipt Date: 20240802
  Transmission Date: 20241017
  Serious: No
  Sender: Public
  Company Number: None

PATIENT
  Age: 72 Year
  Sex: Female
  Weight: 60.15 kg

DRUGS (1)
  1. INVANZ [Suspect]
     Active Substance: ERTAPENEM SODIUM
     Indication: Liver abscess
     Dosage: 1 GRAM  Q-24 HRS ; INTRAVENOUS
     Route: 042
     Dates: start: 20240705, end: 20240715

REACTIONS (5)
  - Balance disorder [None]
  - Dizziness [None]
  - Confusional state [None]
  - Wheelchair user [None]
  - Influenza [None]

NARRATIVE: CASE EVENT DATE: 20240716
